FAERS Safety Report 17148927 (Version 1)
Quarter: 2019Q4

REPORT INFORMATION
  Report Type: Spontaneous
  Country: CZ (occurrence: CZ)
  Receive Date: 20191213
  Receipt Date: 20191213
  Transmission Date: 20200122
  Serious: Yes (Hospitalization)
  Sender: FDA-Public Use
  Company Number: CZ-TEVA-2019-CZ-1150471

PATIENT
  Age: 12 Year
  Sex: Female

DRUGS (1)
  1. ANALERGIN [CETIRIZINE] [Suspect]
     Active Substance: CETIRIZINE HYDROCHLORIDE
     Indication: CONJUNCTIVITIS
     Dosage: 1 TABLET BEFORE SLEEP
     Route: 048

REACTIONS (3)
  - Mydriasis [Recovered/Resolved]
  - Visual impairment [Recovered/Resolved]
  - Accommodation disorder [Recovered/Resolved]

NARRATIVE: CASE EVENT DATE: 20191008
